FAERS Safety Report 20747492 (Version 1)
Quarter: 2022Q2

REPORT INFORMATION
  Report Type: Spontaneous
  Country: US (occurrence: US)
  Receive Date: 20220425
  Receipt Date: 20220425
  Transmission Date: 20220721
  Serious: No
  Sender: FDA-Public Use
  Company Number: US-SA-SAC20220422000732

PATIENT
  Age: 79 Year
  Sex: Male

DRUGS (3)
  1. DUPIXENT [Suspect]
     Active Substance: DUPILUMAB
     Indication: Asthma
     Dosage: 300 MG, QOW
     Route: 058
     Dates: start: 202201
  2. ALDACTONE [Concomitant]
     Active Substance: SPIRONOLACTONE
     Dosage: 625 MG
  3. COREG [Concomitant]
     Active Substance: CARVEDILOL
     Dosage: UNK

REACTIONS (2)
  - Cardiac disorder [Unknown]
  - Product use issue [Unknown]
